FAERS Safety Report 20987381 (Version 2)
Quarter: 2022Q3

REPORT INFORMATION
  Report Type: Spontaneous
  Country: JP (occurrence: JP)
  Receive Date: 20220621
  Receipt Date: 20220708
  Transmission Date: 20221027
  Serious: Yes (Other)
  Sender: FDA-Public Use
  Company Number: JP-ELI_LILLY_AND_COMPANY-JP202206006378

PATIENT
  Age: 75 Year
  Sex: Female
  Weight: 50 kg

DRUGS (8)
  1. CYRAMZA [Suspect]
     Active Substance: RAMUCIRUMAB
     Indication: Gastric cancer stage IV
     Dosage: 400 MG, CYCLICAL
     Route: 041
  2. PACLITAXEL [Suspect]
     Active Substance: PACLITAXEL
     Indication: Gastric cancer stage IV
     Dosage: 90 MG, CYCLICAL
     Route: 065
  3. LINAGLIPTIN [Concomitant]
     Active Substance: LINAGLIPTIN
     Dosage: 5 MG, EACH MORNING
     Route: 048
  4. AMINO ACIDS\CARBOHYDRATES\MINERALS\SOYBEAN OIL\VITAMINS [Concomitant]
     Active Substance: AMINO ACIDS\CARBOHYDRATES\MINERALS\SOYBEAN OIL\VITAMINS
     Dosage: 1 DOSAGE FORM, TID
  5. FULCALIQ [Concomitant]
     Active Substance: AMINO ACIDS\CARBOHYDRATES\ELECTROLYTES NOS\VITAMINS
     Route: 041
  6. ELEJECT [Concomitant]
     Route: 041
  7. VITAJECT [CYANOCOBALAMIN;PYRIDOXINE HYDROCHLO [Concomitant]
     Route: 041
  8. SOYBEAN OIL [Concomitant]
     Active Substance: SOYBEAN OIL
     Route: 041

REACTIONS (2)
  - Clostridium difficile colitis [Recovering/Resolving]
  - Febrile neutropenia [Unknown]
